FAERS Safety Report 9500614 (Version 1)
Quarter: 2013Q1

REPORT INFORMATION
  Report Type: Spontaneous
  Country: US (occurrence: None)
  Receive Date: 20130107
  Receipt Date: 20130107
  Transmission Date: 20140127
  Serious: No
  Sender: FDA-Public Use
  Company Number: PHHY2012US101813

PATIENT
  Age: 37 Year
  Sex: Female
  Weight: 79.4 kg

DRUGS (3)
  1. GILENYA (FINGOLIMOD) CAPSULE, 0.5MG [Suspect]
     Indication: RELAPSING-REMITTING MULTIPLE SCLEROSIS
     Route: 048
     Dates: start: 20110318
  2. ROBAXIN (METHOCARBAMOL) [Concomitant]
  3. CALCIUM WITH VITAMIN D(CALCIUM PHOSPHATE CALCIUM SODIUM LACTATE, ERGOCALCIFEROL) [Concomitant]

REACTIONS (2)
  - Menstruation irregular [None]
  - Metrorrhagia [None]
